FAERS Safety Report 8590797 (Version 2)
Quarter: 2013Q2

REPORT INFORMATION
  Report Type: Spontaneous
  Country: US (occurrence: US)
  Receive Date: 20120601
  Receipt Date: 20130426
  Transmission Date: 20140414
  Serious: Yes (Death, Hospitalization)
  Sender: FDA-Public Use
  Company Number: 2012SP001553

PATIENT
  Age: 36 Year
  Sex: Female

DRUGS (8)
  1. LATUDA [Suspect]
     Indication: SCHIZOPHRENIA
     Route: 048
     Dates: start: 201205
  2. NEURONTIN [Suspect]
     Indication: PRODUCT USED FOR UNKNOWN INDICATION
     Dates: start: 201205
  3. VISTARIL /00058402/ [Suspect]
     Indication: OFF LABEL USE
     Dates: start: 201205
  4. WELLBUTRIN [Suspect]
     Indication: PRODUCT USED FOR UNKNOWN INDICATION
     Dates: start: 201205
  5. TRAZODONE [Concomitant]
     Indication: PRODUCT USED FOR UNKNOWN INDICATION
  6. GEODON /01487003/ [Concomitant]
     Indication: PRODUCT USED FOR UNKNOWN INDICATION
  7. ARTANE [Concomitant]
     Indication: PRODUCT USED FOR UNKNOWN INDICATION
  8. DRUGS USED IN OPIOID DEPENDENCE [Concomitant]
     Indication: PRODUCT USED FOR UNKNOWN INDICATION

REACTIONS (1)
  - Death [Fatal]
